FAERS Safety Report 6056216-4 (Version None)
Quarter: 2009Q1

REPORT INFORMATION
  Report Type: 
  Country: None (occurrence: None)
  Receive Date: 20090123
  Receipt Date: 20090123
  Transmission Date: 20090719
  Serious: Yes (Other)
  Sender: FDA-Public Use
  Company Number: None

PATIENT
  Age: 32 Year
  Sex: Female
  Weight: 74.8435 kg

DRUGS (1)
  1. MONISTAT DUAL- PAK [Suspect]
     Indication: VULVOVAGINAL MYCOTIC INFECTION
     Dosage: 1 OVULE -1200MG- ONCE VAG
     Route: 067
     Dates: start: 20090120, end: 20090121

REACTIONS (7)
  - DRUG HYPERSENSITIVITY [None]
  - IMPAIRED WORK ABILITY [None]
  - VAGINAL ERYTHEMA [None]
  - VAGINAL SWELLING [None]
  - VULVOVAGINAL BURNING SENSATION [None]
  - VULVOVAGINAL DISCOMFORT [None]
  - VULVOVAGINAL PAIN [None]
